FAERS Safety Report 6461097-0 (Version None)
Quarter: 2009Q4

REPORT INFORMATION
  Report Type: 
  Country: None (occurrence: None)
  Receive Date: 20091130
  Receipt Date: 20090817
  Transmission Date: 20100525
  Serious: Yes (Other)
  Sender: FDA-Public Use
  Company Number: B0608226A

PATIENT
  Sex: Female

DRUGS (1)
  1. LAMBIPOL [Suspect]
     Indication: BIPOLAR DISORDER
     Route: 065
     Dates: start: 20090501

REACTIONS (4)
  - ALOPECIA [None]
  - RASH [None]
  - VAGINAL HAEMORRHAGE [None]
  - WEIGHT INCREASED [None]
